FAERS Safety Report 16649315 (Version 2)
Quarter: 2019Q3

REPORT INFORMATION
  Report Type: Spontaneous
  Country: CA (occurrence: CA)
  Receive Date: 20190730
  Receipt Date: 20190801
  Transmission Date: 20191004
  Serious: Yes (Other)
  Sender: FDA-Public Use
  Company Number: CA-BIOMARINAP-CA-2019-124833

PATIENT
  Age: 9 Year
  Sex: Female
  Weight: 18.2 kg

DRUGS (4)
  1. NAGLAZYME [Suspect]
     Active Substance: GALSULFASE
     Indication: MUCOPOLYSACCHARIDOSIS VI
     Dosage: 1 MILLIGRAM/KILOGRAM, QW
     Route: 042
     Dates: start: 201308
  2. PREVACID [Concomitant]
     Active Substance: LANSOPRAZOLE
     Indication: ANTACID THERAPY
     Dosage: UNK, BID
     Route: 048
  3. FIBER [Concomitant]
     Active Substance: PSYLLIUM HUSK
     Indication: CONSTIPATION
     Dosage: UNK, QD
     Route: 065
  4. BENEFIBER FIBER SUPPLEMENT [Concomitant]
     Indication: CONSTIPATION
     Dosage: UNK, QD
     Route: 065

REACTIONS (5)
  - Brain compression [Recovering/Resolving]
  - Cerebrospinal fluid leakage [Recovering/Resolving]
  - Pyrexia [Recovered/Resolved]
  - Diplopia [Recovered/Resolved]
  - Vomiting [Recovered/Resolved]

NARRATIVE: CASE EVENT DATE: 201907
